FAERS Safety Report 4396754-3 (Version None)
Quarter: 2004Q3

REPORT INFORMATION
  Report Type: 
  Country: None (occurrence: None)
  Receive Date: 20040709
  Receipt Date: 20040626
  Transmission Date: 20050211
  Serious: Yes (Life-Threatening, Hospitalization, Other)
  Sender: FDA-Public Use
  Company Number: 2004221651JP

PATIENT
  Age: 66 Year
  Sex: Male

DRUGS (5)
  1. IRINOTECAN (IRINOTECAN)SOLUTION,STERILE [Suspect]
     Indication: SMALL CELL LUNG CANCER STAGE UNSPECIFIED
     Dosage: 100 MG, CYCLIC, IV DRIP
     Route: 041
     Dates: start: 20040623, end: 20040623
  2. PARAPLATIN [Suspect]
     Indication: SMALL CELL LUNG CANCER STAGE UNSPECIFIED
     Dosage: 300 MG, CYCLIC, IV DRIP
     Route: 041
     Dates: start: 20040213, end: 20040213
  3. PARAPLATIN [Suspect]
     Indication: SMALL CELL LUNG CANCER STAGE UNSPECIFIED
     Dosage: 300 MG, CYCLIC, IV DRIP
     Route: 041
     Dates: start: 20040409, end: 20040409
  4. PARAPLATIN [Suspect]
     Indication: SMALL CELL LUNG CANCER STAGE UNSPECIFIED
     Dosage: 300 MG, CYCLIC, IV DRIP
     Route: 041
     Dates: start: 20040508, end: 20040508
  5. PARAPLATIN [Suspect]
     Indication: SMALL CELL LUNG CANCER STAGE UNSPECIFIED
     Dosage: 300 MG, CYCLIC, IV DRIP
     Route: 041
     Dates: start: 20040623, end: 20040623

REACTIONS (1)
  - INTERSTITIAL LUNG DISEASE [None]
